FAERS Safety Report 5660821-4 (Version None)
Quarter: 2008Q1

REPORT INFORMATION
  Report Type: 
  Country: None (occurrence: None)
  Receive Date: 20080311
  Receipt Date: 20080205
  Transmission Date: 20080703
  Serious: Yes (Hospitalization)
  Sender: FDA-Public Use
  Company Number: FR-GENENTECH-247453

PATIENT
  Sex: Female
  Weight: 68 kg

DRUGS (8)
  1. BEVACIZUMAB [Suspect]
     Indication: NON-SMALL CELL LUNG CANCER
     Dosage: 1020 MG, Q3W
     Route: 042
     Dates: start: 20070725
  2. CISPLATIN [Suspect]
     Indication: NON-SMALL CELL LUNG CANCER
     Dosage: 129 MG, QD
     Dates: start: 20070725
  3. GEMCITABINE [Suspect]
     Indication: NON-SMALL CELL LUNG CANCER
     Dosage: 2150 MG, QD
     Dates: start: 20070725
  4. INIPOMP [Concomitant]
     Indication: DRUG USE FOR UNKNOWN INDICATION
  5. STILNOX [Concomitant]
     Indication: DRUG USE FOR UNKNOWN INDICATION
  6. LEXOMIL [Concomitant]
     Indication: DRUG USE FOR UNKNOWN INDICATION
  7. DOMPERIDONE [Concomitant]
     Indication: DRUG USE FOR UNKNOWN INDICATION
  8. COLPOTROPHINE [Concomitant]
     Indication: DRUG USE FOR UNKNOWN INDICATION
     Dates: start: 20070615

REACTIONS (1)
  - FEBRILE BONE MARROW APLASIA [None]
